FAERS Safety Report 4325936-1 (Version None)
Quarter: 2004Q1

REPORT INFORMATION
  Report Type: 
  Country: None (occurrence: None)
  Receive Date: 20040322
  Receipt Date: 20031125
  Transmission Date: 20041129
  Serious: No
  Sender: FDA-Public Use
  Company Number: US-JNJFOC-20031200309

PATIENT
  Age: 20 Year
  Sex: Female
  Weight: 57.6068 kg

DRUGS (3)
  1. ORTHO TRI-CYCLEN LO [Suspect]
     Indication: CONTRACEPTION
     Dosage: 1 DOSE (S), 1 IN 1 DAY, ORAL
     Route: 048
  2. SUDAFED 12 HOUR [Concomitant]
  3. ALBUTEROL [Concomitant]

REACTIONS (3)
  - BRONCHITIS [None]
  - HYPERTROPHY BREAST [None]
  - ILL-DEFINED DISORDER [None]
